FAERS Safety Report 20175119 (Version 2)
Quarter: 2022Q1

REPORT INFORMATION
  Report Type: Spontaneous
  Country: TR (occurrence: TR)
  Receive Date: 20211213
  Receipt Date: 20220112
  Transmission Date: 20220423
  Serious: Yes (Other)
  Sender: FDA-Public Use
  Company Number: TR-ASTELLAS-2021US047390

PATIENT
  Age: 12 Year
  Sex: Female

DRUGS (5)
  1. PROGRAF [Suspect]
     Active Substance: TACROLIMUS
     Indication: Renal transplant
     Route: 048
     Dates: start: 20191020
  2. THYROXINE [Suspect]
     Active Substance: LEVOTHYROXINE
     Indication: Hypothyroidism
     Dosage: UNK UNK, UNKNOWN FREQ.
     Route: 065
  3. MYCOPHENOLATE MOFETIL [Concomitant]
     Active Substance: MYCOPHENOLATE MOFETIL
     Indication: Renal transplant
     Dosage: UNK UNK, UNKNOWN FREQ.
     Route: 065
  4. CYSTEAMINE [Concomitant]
     Active Substance: CYSTEAMINE
     Indication: Cystinosis
     Dosage: UNK UNK, UNKNOWN FREQ.
     Route: 065
  5. CYSTEAMINE [Concomitant]
     Active Substance: CYSTEAMINE
     Indication: Cystinosis
     Dosage: UNK UNK, UNKNOWN FREQ.
     Route: 065

REACTIONS (4)
  - Intracranial pressure increased [Recovering/Resolving]
  - Papilloedema [Unknown]
  - Idiopathic intracranial hypertension [Unknown]
  - Cytomegalovirus infection [Recovered/Resolved]

NARRATIVE: CASE EVENT DATE: 20200210
